FAERS Safety Report 20727840 (Version 1)
Quarter: 2022Q2

REPORT INFORMATION
  Report Type: Spontaneous
  Country: AT (occurrence: AT)
  Receive Date: 20220419
  Receipt Date: 20220419
  Transmission Date: 20220721
  Serious: Yes (Other)
  Sender: FDA-Public Use
  Company Number: AT-DAIICHI SANKYO EUROPE GMBH-DSE-2022-112870

PATIENT
  Age: 65 Year
  Sex: Male
  Weight: 72 kg

DRUGS (1)
  1. BEMPEDOIC ACID [Suspect]
     Active Substance: BEMPEDOIC ACID
     Indication: Drug intolerance
     Dosage: 1 DF, QD
     Route: 048
     Dates: start: 202111, end: 20220118

REACTIONS (1)
  - Renal failure [Recovered/Resolved]

NARRATIVE: CASE EVENT DATE: 20220118
